FAERS Safety Report 5682322-X (Version None)
Quarter: 2008Q1

REPORT INFORMATION
  Report Type: 
  Country: None (occurrence: None)
  Receive Date: 20080327
  Receipt Date: 20070507
  Transmission Date: 20080703
  Serious: No
  Sender: FDA-Public Use
  Company Number: US-BAUSCH-2007BL001520

PATIENT
  Age: 24 Year
  Sex: Female

DRUGS (4)
  1. ALREX [Suspect]
     Indication: EYE ALLERGY
     Route: 047
     Dates: start: 20070423, end: 20070426
  2. ALREX [Suspect]
     Indication: KERATOCONJUNCTIVITIS SICCA
     Route: 047
     Dates: start: 20070423, end: 20070426
  3. ALREX [Suspect]
     Route: 047
     Dates: start: 20070401
  4. ALREX [Suspect]
     Route: 047
     Dates: start: 20070401

REACTIONS (1)
  - THIRST [None]
